FAERS Safety Report 19809638 (Version 1)
Quarter: 2021Q3

REPORT INFORMATION
  Report Type: Spontaneous
  Country: US (occurrence: US)
  Receive Date: 20210908
  Receipt Date: 20210908
  Transmission Date: 20211014
  Serious: No
  Sender: FDA-Public Use
  Company Number: US-ROCHE-2744096

PATIENT
  Age: 60 Year
  Sex: Female
  Weight: 71.28 kg

DRUGS (1)
  1. ALECENSA [Suspect]
     Active Substance: ALECTINIB HYDROCHLORIDE
     Indication: NON-SMALL CELL LUNG CANCER
     Route: 048
     Dates: start: 201702

REACTIONS (5)
  - Onychoclasis [Not Recovered/Not Resolved]
  - Alopecia [Not Recovered/Not Resolved]
  - Skin fragility [Not Recovered/Not Resolved]
  - Weight increased [Recovered/Resolved]
  - Headache [Not Recovered/Not Resolved]

NARRATIVE: CASE EVENT DATE: 201803
